FAERS Safety Report 6897072-1 (Version None)
Quarter: 2010Q3

REPORT INFORMATION
  Report Type: 
  Country: None (occurrence: None)
  Receive Date: 20100802
  Receipt Date: 20070907
  Transmission Date: 20110219
  Serious: Yes (Other)
  Sender: FDA-Public Use
  Company Number: US-PFIZER INC-2007026539

PATIENT
  Sex: Female
  Weight: 90.7 kg

DRUGS (5)
  1. LYRICA [Suspect]
     Indication: DRUG DEPENDENCE
     Dates: start: 20070312, end: 20070325
  2. OXYCODONE [Concomitant]
     Dates: start: 20060801
  3. PAXIL CR [Concomitant]
  4. KLONOPIN [Concomitant]
  5. LEVOTHROID [Concomitant]

REACTIONS (20)
  - ABDOMINAL DISCOMFORT [None]
  - AMNESIA [None]
  - ANXIETY [None]
  - DEPRESSION [None]
  - DIZZINESS [None]
  - DRUG INEFFECTIVE [None]
  - DRY MOUTH [None]
  - FATIGUE [None]
  - FEELING ABNORMAL [None]
  - FEELING OF DESPAIR [None]
  - HEADACHE [None]
  - INSOMNIA [None]
  - IRRITABILITY [None]
  - MOOD ALTERED [None]
  - MYALGIA [None]
  - NAUSEA [None]
  - PARANOIA [None]
  - PYREXIA [None]
  - SOMNOLENCE [None]
  - WITHDRAWAL SYNDROME [None]
